FAERS Safety Report 24734759 (Version 1)
Quarter: 2024Q4

REPORT INFORMATION
  Report Type: Spontaneous
  Country: US (occurrence: US)
  Receive Date: 20241214
  Receipt Date: 20241214
  Transmission Date: 20250114
  Serious: No
  Sender: SANDOZ
  Company Number: US-SANDOZ-SDZ2024US102117

PATIENT
  Sex: Male

DRUGS (1)
  1. ALBUTEROL SULFATE [Suspect]
     Active Substance: ALBUTEROL SULFATE
     Indication: Pneumonia
     Dosage: TWO PUFFS BY MOUTH EVERY 4-6 HOURS
     Route: 048

REACTIONS (4)
  - Product dose omission issue [Unknown]
  - Device defective [Unknown]
  - Device delivery system issue [Unknown]
  - Device breakage [Unknown]
